FAERS Safety Report 7948655-9 (Version None)
Quarter: 2011Q4

REPORT INFORMATION
  Report Type: 
  Country: None (occurrence: None)
  Receive Date: 20111130
  Receipt Date: 20111130
  Transmission Date: 20120403
  Serious: Yes (Hospitalization)
  Sender: FDA-Public Use
  Company Number: None

PATIENT
  Sex: Female
  Weight: 41.6 kg

DRUGS (1)
  1. ORTHO TRI-CYCLEN [Suspect]
     Route: 048

REACTIONS (5)
  - ILEOSTOMY [None]
  - POSTOPERATIVE WOUND INFECTION [None]
  - POST PROCEDURAL PNEUMONIA [None]
  - MALNUTRITION [None]
  - PULMONARY EMBOLISM [None]
